FAERS Safety Report 5071760-4 (Version None)
Quarter: 2006Q3

REPORT INFORMATION
  Report Type: 
  Country: None (occurrence: None)
  Receive Date: 20060801
  Receipt Date: 20060719
  Transmission Date: 20061208
  Serious: Yes (Death)
  Sender: FDA-Public Use
  Company Number: RU200607003477

PATIENT
  Age: 73 Year
  Sex: Male

DRUGS (1)
  1. OLANZAPINE [Suspect]
     Indication: SCHIZOPHRENIA, PARANOID TYPE
     Dosage: 10 MG, 3/D, ORAL
     Route: 048
     Dates: start: 20060628

REACTIONS (2)
  - COMPLETED SUICIDE [None]
  - PRESCRIBED OVERDOSE [None]
